FAERS Safety Report 6970180-2 (Version None)
Quarter: 2010Q3

REPORT INFORMATION
  Report Type: 
  Country: None (occurrence: None)
  Receive Date: 20100903
  Receipt Date: 20100824
  Transmission Date: 20110219
  Serious: Yes (Other)
  Sender: FDA-Public Use
  Company Number: AXC-2010-000223

PATIENT
  Sex: Female

DRUGS (4)
  1. MESALAMINE [Suspect]
     Indication: CROHN'S DISEASE
     Dosage: 1200 MG, BID, ORAL
     Route: 048
     Dates: start: 20070701
  2. BUDESONIDE [Suspect]
     Indication: CROHN'S DISEASE
     Dosage: 4.5 MG, TID,
     Dates: start: 20070701
  3. MERCAPTOPURINE [Suspect]
     Indication: CROHN'S DISEASE
     Dosage: 50 MG, QD, ORAL
     Route: 048
     Dates: start: 20070901, end: 20081201
  4. TUMOR NECROSIS FACTOR ALPHA (TNF-ALPHA) INHIB () [Suspect]
     Indication: CROHN'S DISEASE
     Dates: start: 20081201, end: 20090501

REACTIONS (5)
  - ACUTE MYELOID LEUKAEMIA [None]
  - CONDITION AGGRAVATED [None]
  - CROHN'S DISEASE [None]
  - DIARRHOEA [None]
  - LYMPHADENOPATHY [None]
